FAERS Safety Report 24766371 (Version 1)
Quarter: 2024Q4

REPORT INFORMATION
  Report Type: Spontaneous
  Country: US (occurrence: US)
  Receive Date: 20241223
  Receipt Date: 20241223
  Transmission Date: 20250115
  Serious: No
  Sender: KALEO, INC.
  Company Number: US-Kaleo, Inc.-2024KL000058

PATIENT
  Age: 16 Year
  Sex: Female

DRUGS (1)
  1. AUVI-Q [Suspect]
     Active Substance: EPINEPHRINE

REACTIONS (1)
  - Device leakage [Not Recovered/Not Resolved]
